FAERS Safety Report 25864373 (Version 1)
Quarter: 2025Q3

REPORT INFORMATION
  Report Type: Spontaneous
  Country: JP (occurrence: JP)
  Receive Date: 20250930
  Receipt Date: 20250930
  Transmission Date: 20251020
  Serious: Yes (Other)
  Sender: AMGEN
  Company Number: JP-AMGEN-JPNSP2025191347

PATIENT

DRUGS (2)
  1. BEVACIZUMAB [Suspect]
     Active Substance: BEVACIZUMAB
     Indication: Cervix carcinoma recurrent
     Route: 065
  2. PACLITAXEL [Concomitant]
     Active Substance: PACLITAXEL
     Indication: Cervix carcinoma recurrent
     Route: 065

REACTIONS (6)
  - Cervix carcinoma recurrent [Unknown]
  - Interstitial lung disease [Unknown]
  - Febrile neutropenia [Unknown]
  - Anaemia [Unknown]
  - Adverse event [Unknown]
  - Urinary tract infection [Unknown]
